FAERS Safety Report 5983127-2 (Version None)
Quarter: 2008Q4

REPORT INFORMATION
  Report Type: 
  Country: None (occurrence: None)
  Receive Date: 20081204
  Receipt Date: 20081204
  Transmission Date: 20090506
  Serious: Yes (Hospitalization)
  Sender: FDA-Public Use
  Company Number: None

PATIENT
  Age: 70 Year
  Sex: Male
  Weight: 72 kg

DRUGS (13)
  1. AVELOX [Suspect]
     Indication: PNEUMONIA
     Dosage: 400MG DAILY PO
     Route: 048
     Dates: start: 20081121, end: 20081128
  2. ASPIRIN [Concomitant]
  3. LIPITOR [Concomitant]
  4. CALCIUM ACETATE -PHOSLO- [Concomitant]
  5. CINACALCET -SENSIPAR- [Concomitant]
  6. PLAVIX [Concomitant]
  7. FLONASE [Concomitant]
  8. COZAAR [Concomitant]
  9. FOLIC ACID [Concomitant]
  10. NEPHROVITE [Concomitant]
  11. TOPROL-XL [Concomitant]
  12. WARFARIN SODIUM [Concomitant]
  13. SEVELAMER [Concomitant]

REACTIONS (2)
  - LETHARGY [None]
  - MENTAL STATUS CHANGES [None]
